FAERS Safety Report 21322235 (Version 1)
Quarter: 2022Q3

REPORT INFORMATION
  Report Type: Spontaneous
  Country: JP (occurrence: JP)
  Receive Date: 20220912
  Receipt Date: 20220912
  Transmission Date: 20221027
  Serious: Yes (Death)
  Sender: FDA-Public Use
  Company Number: JP-NOVARTISPH-NVSC2022JP204250

PATIENT
  Age: 16 Year
  Sex: Female

DRUGS (2)
  1. OXCARBAZEPINE [Suspect]
     Active Substance: OXCARBAZEPINE
     Indication: Partial seizures
     Dosage: UNK
     Route: 048
     Dates: start: 2011
  2. OXCARBAZEPINE [Suspect]
     Active Substance: OXCARBAZEPINE
     Dosage: 2040 MG, QD
     Route: 048
     Dates: start: 20220821

REACTIONS (1)
  - Sudden unexplained death in epilepsy [Fatal]

NARRATIVE: CASE EVENT DATE: 20220821
